FAERS Safety Report 25920277 (Version 1)
Quarter: 2025Q4

REPORT INFORMATION
  Report Type: Spontaneous
  Country: AR (occurrence: AR)
  Receive Date: 20251014
  Receipt Date: 20251014
  Transmission Date: 20260118
  Serious: Yes (Other)
  Sender: SANDOZ
  Company Number: AR-SANDOZ-SDZ2025AR075743

PATIENT
  Age: 37 Year
  Sex: Female

DRUGS (1)
  1. HYRIMOZ [Suspect]
     Active Substance: ADALIMUMAB-ADAZ
     Indication: Crohn^s disease
     Dosage: DOSE: 40, FREQUENCY: 2 (40MG /0.8ML PENS PREFILLED X 2 )
     Route: 058
     Dates: start: 20250719

REACTIONS (3)
  - Gastrointestinal fistula [Unknown]
  - Malaise [Unknown]
  - Swelling [Unknown]

NARRATIVE: CASE EVENT DATE: 20251008
